FAERS Safety Report 17522543 (Version 1)
Quarter: 2020Q1

REPORT INFORMATION
  Report Type: Spontaneous
  Country: US (occurrence: US)
  Receive Date: 20200310
  Receipt Date: 20200310
  Transmission Date: 20200409
  Serious: Yes (Death)
  Sender: FDA-Public Use
  Company Number: US-ASTRAZENECA-2020SE33672

PATIENT
  Age: 65 Year
  Sex: Female

DRUGS (7)
  1. RIVAROXABAN [Concomitant]
     Active Substance: RIVAROXABAN
  2. QUETIAPINE. [Suspect]
     Active Substance: QUETIAPINE
     Dosage: SEVEN PILLS
     Route: 048
  3. RANOLAZINE. [Suspect]
     Active Substance: RANOLAZINE
     Dosage: FIFTY 1000MG RANOLAZINE TABLETS
     Route: 048
  4. MIRTAZAPINE. [Suspect]
     Active Substance: MIRTAZAPINE
     Dosage: SEVEN PILLS
     Route: 048
  5. VALPROATE [Suspect]
     Active Substance: VALPROIC ACID
     Dosage: SEVEN PILLS
     Route: 048
  6. GABAPENTIN. [Suspect]
     Active Substance: GABAPENTIN
     Route: 048
  7. TRAZODONE [Suspect]
     Active Substance: TRAZODONE HYDROCHLORIDE

REACTIONS (6)
  - Electrocardiogram QT prolonged [Fatal]
  - Toxicity to various agents [Fatal]
  - Circulatory collapse [Fatal]
  - Overdose [Fatal]
  - Tonic clonic movements [Fatal]
  - Hypotension [Fatal]
